FAERS Safety Report 7830226-6 (Version None)
Quarter: 2011Q4

REPORT INFORMATION
  Report Type: 
  Country: None (occurrence: None)
  Receive Date: 20111021
  Receipt Date: 20111017
  Transmission Date: 20120403
  Serious: Yes (Other)
  Sender: FDA-Public Use
  Company Number: PHEH2011US02569

PATIENT
  Sex: Female
  Weight: 139 kg

DRUGS (11)
  1. ZOLPIDEM [Concomitant]
     Dosage: UNK UKN, UNK
  2. DIHYDROERGOTAMINE [Concomitant]
     Dosage: UNK UKN, UNK
  3. OXYCONTIN [Concomitant]
     Dosage: UNK UKN, UNK
  4. OXYCODONE HCL [Concomitant]
     Dosage: UNK UKN, UNK
  5. LEVOTHYROXINE SODIUM [Concomitant]
     Dosage: UNK UKN, UNK
  6. GILENYA [Suspect]
     Indication: MULTIPLE SCLEROSIS
     Dosage: 0.5 MG, QD
     Route: 048
     Dates: start: 20110812, end: 20110812
  7. LYRICA [Concomitant]
     Dosage: UNK UKN, UNK
  8. CYMBALTA [Concomitant]
     Dosage: UNK UKN, UNK
  9. ALPRAZOLAM [Concomitant]
     Dosage: UNK UKN, UNK
  10. NUVIGIL [Concomitant]
     Dosage: UNK UKN, UNK
  11. DIAZEPAM [Concomitant]
     Dosage: UNK UKN, UNK

REACTIONS (6)
  - CHEST DISCOMFORT [None]
  - CHEST PAIN [None]
  - VOMITING [None]
  - MYOCARDIAL INFARCTION [None]
  - PAIN IN EXTREMITY [None]
  - BRADYCARDIA [None]
